FAERS Safety Report 7298134-X (Version None)
Quarter: 2011Q1

REPORT INFORMATION
  Report Type: 
  Country: None (occurrence: None)
  Receive Date: 20110217
  Receipt Date: 20110210
  Transmission Date: 20110831
  Serious: Yes (Other)
  Sender: FDA-Public Use
  Company Number: AU-JNJFOC-20100307589

PATIENT
  Sex: Female
  Weight: 52 kg

DRUGS (2)
  1. REMICADE [Suspect]
     Indication: CROHN'S DISEASE
     Route: 042
  2. REMICADE [Suspect]
     Dosage: THE DOSE WAS 300 (UNSPECIFIED UNITS)
     Route: 042

REACTIONS (3)
  - DRUG EXPOSURE BEFORE PREGNANCY [None]
  - POSTPARTUM DEPRESSION [None]
  - CROHN'S DISEASE [None]
